FAERS Safety Report 9038147 (Version 1)
Quarter: 2013Q1

REPORT INFORMATION
  Report Type: Spontaneous
  Country: US (occurrence: US)
  Receive Date: 20130129
  Receipt Date: 20130129
  Transmission Date: 20140127
  Serious: No
  Sender: FDA-Public Use
  Company Number: US-GLAXOSMITHKLINE-A0967176A

PATIENT
  Age: 92 Year
  Sex: Female

DRUGS (3)
  1. BUPROPION HYDROCHLORIDE [Suspect]
     Indication: DEPRESSION
     Route: 048
     Dates: start: 20120202
  2. LEXAPRO [Concomitant]
  3. BUSPAR [Concomitant]

REACTIONS (1)
  - Tremor [Not Recovered/Not Resolved]
